FAERS Safety Report 11217683 (Version 3)
Quarter: 2015Q4

REPORT INFORMATION
  Report Type: Spontaneous
  Country: US (occurrence: US)
  Receive Date: 20150625
  Receipt Date: 20151029
  Transmission Date: 20160304
  Serious: Yes (Hospitalization, Other)
  Sender: FDA-Public Use
  Company Number: US-BRISTOL-MYERS SQUIBB COMPANY-BMS-2015-039422

PATIENT
  Age: 68 Year
  Sex: Male

DRUGS (2)
  1. KENALOG-40 [Suspect]
     Active Substance: TRIAMCINOLONE ACETONIDE
     Indication: PAIN
     Dosage: 40 MG, ONE TIME DOSE
     Route: 014
     Dates: start: 20150603
  2. XYLOCAINE [Suspect]
     Active Substance: LIDOCAINE HYDROCHLORIDE
     Indication: PAIN
     Dosage: UNK, ONE TIME DOSE
     Route: 014
     Dates: start: 20150603

REACTIONS (9)
  - Pain [Unknown]
  - Arthroscopy [Unknown]
  - Arthropathy [Unknown]
  - Arthritis bacterial [Unknown]
  - Staphylococcus test positive [Unknown]
  - Syncope [Unknown]
  - C-reactive protein increased [Unknown]
  - White blood cell count increased [Unknown]
  - Suspected transmission of an infectious agent via product [Unknown]

NARRATIVE: CASE EVENT DATE: 20150604
